FAERS Safety Report 9578908 (Version 1)
Quarter: 2013Q4

REPORT INFORMATION
  Report Type: Spontaneous
  Country: US (occurrence: US)
  Receive Date: 20131001
  Receipt Date: 20131001
  Transmission Date: 20140711
  Serious: No
  Sender: FDA-Public Use
  Company Number: US-AMGEN-USASP2013015819

PATIENT
  Age: 47 Year
  Sex: Male
  Weight: 81.63 kg

DRUGS (6)
  1. ENBREL [Suspect]
     Indication: RHEUMATOID ARTHRITIS
     Dosage: 50 MG, QWK
     Route: 058
  2. LIALDA [Concomitant]
     Dosage: 1.2 G, UNK
  3. ASPIRIN [Concomitant]
     Dosage: 5 (GR) UNK, UNK
  4. MULTIVITAMIN                       /07504101/ [Concomitant]
     Dosage: UNK
  5. CITALOPRAM [Concomitant]
     Dosage: 10 MG, UNK
  6. PROTONIX [Concomitant]
     Dosage: 20 MG, UNK

REACTIONS (2)
  - Crohn^s disease [Unknown]
  - Drug ineffective for unapproved indication [Unknown]
